FAERS Safety Report 7868895-7 (Version None)
Quarter: 2011Q4

REPORT INFORMATION
  Report Type: 
  Country: None (occurrence: None)
  Receive Date: 20111028
  Receipt Date: 20101221
  Transmission Date: 20120403
  Serious: No
  Sender: FDA-Public Use
  Company Number: US-AMGEN-USASP2010010606

PATIENT
  Age: 57 Year
  Sex: Female

DRUGS (1)
  1. ENBREL [Suspect]
     Indication: RHEUMATOID ARTHRITIS
     Dates: start: 20060101

REACTIONS (6)
  - FEELING COLD [None]
  - PRURITUS [None]
  - ERYTHEMA [None]
  - INJECTION SITE PAIN [None]
  - ARTHRALGIA [None]
  - OROPHARYNGEAL BLISTERING [None]
